FAERS Safety Report 5917365-1 (Version None)
Quarter: 2008Q4

REPORT INFORMATION
  Report Type: 
  Country: None (occurrence: None)
  Receive Date: 20081014
  Receipt Date: 20081003
  Transmission Date: 20090506
  Serious: Yes (Other)
  Sender: FDA-Public Use
  Company Number: US-WYE-H06254408

PATIENT
  Age: 4 Year
  Sex: Male

DRUGS (4)
  1. DEXTROMETHORPHAN HYDROBROMIDE [Suspect]
     Indication: COUGH
     Dosage: UNKNOWN
     Route: 065
  2. DEXTROMETHORPHAN HYDROBROMIDE [Suspect]
     Indication: RHINORRHOEA
  3. DEXTROMETHORPHAN HYDROBROMIDE [Suspect]
     Indication: WHEEZING
  4. CEFDINIR [Suspect]
     Dosage: UNKNOWN
     Route: 065

REACTIONS (1)
  - URTICARIA [None]
